FAERS Safety Report 6291188-9 (Version None)
Quarter: 2009Q3

REPORT INFORMATION
  Report Type: 
  Country: None (occurrence: None)
  Receive Date: 20090730
  Receipt Date: 20090728
  Transmission Date: 20100115
  Serious: Yes (Hospitalization)
  Sender: FDA-Public Use
  Company Number: Z0001201A

PATIENT
  Sex: Female
  Weight: 38.5 kg

DRUGS (2)
  1. LAPATINIB [Suspect]
     Indication: GASTRIC CANCER
     Dosage: 1500MG PER DAY
     Route: 048
     Dates: start: 20090218
  2. PACLITAXEL [Suspect]
     Indication: GASTRIC CANCER
     Dosage: 80MGM2 CYCLIC
     Route: 042
     Dates: start: 20090218

REACTIONS (3)
  - ABDOMINAL PAIN [None]
  - NAUSEA [None]
  - VOMITING [None]
